FAERS Safety Report 8462085-5 (Version None)
Quarter: 2012Q2

REPORT INFORMATION
  Report Type: 
  Country: None (occurrence: None)
  Receive Date: 20120625
  Receipt Date: 20120614
  Transmission Date: 20120825
  Serious: Yes (Other)
  Sender: FDA-Public Use
  Company Number: JP-JNJFOC-20120604699

PATIENT
  Age: 7 Year
  Sex: Male

DRUGS (3)
  1. NORFLOXACIN [Suspect]
     Indication: PRODUCT USED FOR UNKNOWN INDICATION
     Route: 065
  2. CONCERTA [Suspect]
     Indication: PRODUCT USED FOR UNKNOWN INDICATION
     Route: 048
  3. AN UNKNOWN MEDICATION [Concomitant]
     Route: 065

REACTIONS (1)
  - HEPATIC FUNCTION ABNORMAL [None]
